FAERS Safety Report 5255108-8 (Version None)
Quarter: 2007Q1

REPORT INFORMATION
  Report Type: 
  Country: None (occurrence: None)
  Receive Date: 20070305
  Receipt Date: 20070221
  Transmission Date: 20070707
  Serious: Yes (Other)
  Sender: FDA-Public Use
  Company Number: PHBS2007US03435

PATIENT
  Age: 57 Year
  Sex: Female

DRUGS (4)
  1. NEORAL [Suspect]
     Indication: LUNG TRANSPLANT
     Route: 048
  2. SANDIMMUNE [Suspect]
     Indication: LUNG TRANSPLANT
  3. AMPHOTERICIN B [Concomitant]
     Indication: LUNG TRANSPLANT
  4. PREDNISONE [Concomitant]
     Indication: LUNG TRANSPLANT
     Route: 048

REACTIONS (6)
  - LICHENIFICATION [None]
  - LICHENOID KERATOSIS [None]
  - LIVER FUNCTION TEST ABNORMAL [None]
  - PYREXIA [None]
  - RASH MACULAR [None]
  - RASH PUSTULAR [None]
